FAERS Safety Report 8215498-0 (Version None)
Quarter: 2012Q1

REPORT INFORMATION
  Report Type: 
  Country: None (occurrence: None)
  Receive Date: 20120316
  Receipt Date: 20120307
  Transmission Date: 20120608
  Serious: Yes (Hospitalization)
  Sender: FDA-Public Use
  Company Number: CA-ROCHE-1046204

PATIENT
  Sex: Female
  Weight: 59.02 kg

DRUGS (8)
  1. FLEXERIL [Concomitant]
  2. LYRICA [Concomitant]
  3. ADALAT CC [Concomitant]
  4. MABTHERA [Suspect]
     Route: 042
     Dates: start: 20110809, end: 20110823
  5. PANTOPRAZOLE SODIUM [Concomitant]
  6. MABTHERA [Suspect]
     Indication: RHEUMATOID ARTHRITIS
     Route: 042
     Dates: start: 20110809, end: 20110823
  7. FOLIC ACID [Concomitant]
  8. METHOTREXATE [Concomitant]

REACTIONS (1)
  - INTRACRANIAL ANEURYSM [None]
